FAERS Safety Report 8100827 (Version 3)
Quarter: 2015Q4

REPORT INFORMATION
  Report Type: Spontaneous
  Country: US (occurrence: US)
  Receive Date: 20110822
  Receipt Date: 20151214
  Transmission Date: 20160305
  Serious: Yes (Death, Other)
  Sender: FDA-Public Use
  Company Number: US-BAYER-2011-075160

PATIENT
  Age: 27 Year
  Sex: Female
  Weight: 85.71 kg

DRUGS (6)
  1. YASMIN [Suspect]
     Active Substance: DROSPIRENONE\ETHINYL ESTRADIOL
  2. PREDNISONE. [Concomitant]
     Active Substance: PREDNISONE
     Dosage: 10 MG, UNK
  3. EPINEPHRINE. [Concomitant]
     Active Substance: EPINEPHRINE
  4. ATROPINE. [Concomitant]
     Active Substance: ATROPINE
  5. SODIUM BICARBONATE. [Concomitant]
     Active Substance: SODIUM BICARBONATE
  6. YAZ [Suspect]
     Active Substance: DROSPIRENONE\ETHINYL ESTRADIOL

REACTIONS (2)
  - Arrhythmia [Fatal]
  - Embolism arterial [None]

NARRATIVE: CASE EVENT DATE: 20070605
